FAERS Safety Report 11259501 (Version 1)
Quarter: 2015Q3

REPORT INFORMATION
  Report Type: Spontaneous
  Country: US (occurrence: None)
  Receive Date: 20150709
  Receipt Date: 20150709
  Transmission Date: 20151125
  Serious: Yes (Hospitalization)
  Sender: FDA-Public Use
  Company Number: None

PATIENT
  Age: 51 Year
  Sex: Male
  Weight: 97.52 kg

DRUGS (1)
  1. STIMATE [Suspect]
     Active Substance: DESMOPRESSIN ACETATE
     Indication: COAGULOPATHY
     Dosage: 1 SPRAY PER NOSTRIL AS NEEDED INHALATION
     Route: 055
     Dates: start: 20150612, end: 20150612

REACTIONS (1)
  - Renal infarct [None]

NARRATIVE: CASE EVENT DATE: 20150613
